FAERS Safety Report 8460086-4 (Version None)
Quarter: 2012Q2

REPORT INFORMATION
  Report Type: 
  Country: None (occurrence: None)
  Receive Date: 20120622
  Receipt Date: 20120619
  Transmission Date: 20120825
  Serious: Yes (Other)
  Sender: FDA-Public Use
  Company Number: US-BAYER-2012-050768

PATIENT
  Age: 60 Year
  Sex: Female

DRUGS (6)
  1. RAPAMUNE [Concomitant]
     Dosage: 1 MG
  2. LAMICTAL [Concomitant]
     Dosage: 25 MG
  3. ONDANSETRON [Concomitant]
     Dosage: 8 MG
  4. NEXAVAR [Suspect]
     Indication: HEPATIC NEOPLASM MALIGNANT
     Dosage: 400 MG, BID
     Route: 048
     Dates: start: 20110923, end: 20120503
  5. NEXIUM [Concomitant]
     Dosage: 40 MG
  6. LORAZEPAM [Concomitant]
     Dosage: 0.5 MG

REACTIONS (1)
  - HEPATIC NEOPLASM MALIGNANT [None]
